FAERS Safety Report 8040040-7 (Version None)
Quarter: 2012Q1

REPORT INFORMATION
  Report Type: 
  Country: None (occurrence: None)
  Receive Date: 20120111
  Receipt Date: 20111223
  Transmission Date: 20120608
  Serious: No
  Sender: FDA-Public Use
  Company Number: US-AMGEN-USASP2011068799

PATIENT
  Age: 43 Year
  Sex: Female

DRUGS (2)
  1. ENBREL [Suspect]
     Indication: RHEUMATOID ARTHRITIS
     Dosage: 50 MG, QWK
     Dates: start: 20110321
  2. ENBREL [Suspect]
     Indication: REITER'S SYNDROME

REACTIONS (5)
  - ARTHRALGIA [None]
  - ARTHRITIS [None]
  - STRESS [None]
  - INSOMNIA [None]
  - JOINT SWELLING [None]
